FAERS Safety Report 11847451 (Version 1)
Quarter: 2015Q4

REPORT INFORMATION
  Report Type: Other
  Country: US (occurrence: US)
  Receive Date: 20151217
  Receipt Date: 20151217
  Transmission Date: 20160305
  Serious: Yes (Other)
  Sender: FDA-Public Use
  Company Number: US-DEP_13202_2015

PATIENT
  Age: 74 Year
  Sex: Female
  Weight: 76 kg

DRUGS (3)
  1. GRALISE [Suspect]
     Active Substance: GABAPENTIN
     Indication: SCIATICA
     Dosage: SAMPLE PACK; TITRATED UP TO 1500MG ONCE DAILY
     Route: 048
     Dates: start: 20151121, end: 201512
  2. WARFARIN [Concomitant]
     Active Substance: WARFARIN
     Dosage: DF
  3. AMLODIPINE [Concomitant]
     Active Substance: AMLODIPINE BESYLATE
     Indication: HYPERTENSION
     Dosage: DF

REACTIONS (8)
  - Hypotension [Recovering/Resolving]
  - Off label use [Recovered/Resolved]
  - Drug dose omission [Recovered/Resolved]
  - Somnolence [Recovering/Resolving]
  - Fatigue [Recovering/Resolving]
  - Lethargy [Recovering/Resolving]
  - Memory impairment [Recovering/Resolving]
  - Drug dose titration not performed [Recovered/Resolved]

NARRATIVE: CASE EVENT DATE: 201511
